FAERS Safety Report 7827521-3 (Version None)
Quarter: 2011Q4

REPORT INFORMATION
  Report Type: 
  Country: None (occurrence: None)
  Receive Date: 20111020
  Receipt Date: 20111013
  Transmission Date: 20120403
  Serious: No
  Sender: FDA-Public Use
  Company Number: DE-ROCHE-1005802

PATIENT
  Sex: Female

DRUGS (1)
  1. TAMIFLU [Suspect]
     Indication: INFLUENZA
     Dosage: DOSE: 2X75 MG

REACTIONS (2)
  - OVERDOSE [None]
  - NO ADVERSE EVENT [None]
